FAERS Safety Report 8465117-3 (Version None)
Quarter: 2012Q2

REPORT INFORMATION
  Report Type: 
  Country: None (occurrence: None)
  Receive Date: 20120626
  Receipt Date: 20120621
  Transmission Date: 20120825
  Serious: Yes (Death, Life-Threatening, Hospitalization)
  Sender: FDA-Public Use
  Company Number: FR-MILLENNIUM PHARMACEUTICALS, INC.-2012-01419

PATIENT

DRUGS (7)
  1. CYCLOPHOSPHAMIDE [Suspect]
     Indication: MULTIPLE MYELOMA
     Dosage: 75 MG/M2, UNK
     Dates: start: 20111104
  2. PERINDOPRIL ERBUMINE [Concomitant]
     Indication: HYPERTENSION
     Dosage: 8 MG, UNK
     Route: 048
  3. VELCADE [Suspect]
     Indication: MULTIPLE MYELOMA
     Dosage: 2.4 MG, UNK
     Route: 042
     Dates: end: 20120207
  4. BISOPROLOL FUMARATE [Concomitant]
     Indication: HYPERTENSION
     Dosage: 2.5 MG, UNK
     Route: 048
  5. DEXAMETHASONE [Suspect]
     Indication: MULTIPLE MYELOMA
     Dosage: 20 MG, UNK
     Route: 048
     Dates: start: 20111104
  6. LERCANIDIPINE [Concomitant]
     Indication: HYPERTENSION
     Route: 048
  7. PLAVIX [Concomitant]
     Dosage: UNK
     Route: 048

REACTIONS (3)
  - MYOCARDIAL INFARCTION [None]
  - DEATH [None]
  - LUNG INFECTION [None]
